FAERS Safety Report 4876268-4 (Version None)
Quarter: 2005Q4

REPORT INFORMATION
  Report Type: 
  Country: None (occurrence: None)
  Receive Date: 20051206
  Receipt Date: 20050811
  Transmission Date: 20060501
  Serious: Yes (Other)
  Sender: FDA-Public Use
  Company Number: USA0508105242

PATIENT
  Age: 64 Year
  Sex: Female
  Weight: 126 kg

DRUGS (7)
  1. CYMBALTA [Suspect]
     Indication: BIPOLAR I DISORDER
     Dosage: 60 MG DAY
     Dates: start: 20050101
  2. KLONOPIN [Concomitant]
  3. TRAZODONE HCL [Concomitant]
  4. CLONAZEPAM [Concomitant]
  5. GEODON [Concomitant]
  6. ATENOLOL [Concomitant]
  7. SYNTHROID [Concomitant]

REACTIONS (7)
  - DRY MOUTH [None]
  - HYPERHIDROSIS [None]
  - MEMORY IMPAIRMENT [None]
  - NAUSEA [None]
  - NERVOUSNESS [None]
  - TENSION [None]
  - WEIGHT INCREASED [None]
